FAERS Safety Report 9205941 (Version 1)
Quarter: 2013Q2

REPORT INFORMATION
  Report Type: Spontaneous
  Country: US (occurrence: US)
  Receive Date: 20130403
  Receipt Date: 20130403
  Transmission Date: 20140414
  Serious: Yes (Other)
  Sender: FDA-Public Use
  Company Number: US-BAYER-2013-038662

PATIENT
  Age: 81 Year
  Sex: Female

DRUGS (1)
  1. CLIMARA [Suspect]
     Indication: HORMONE REPLACEMENT THERAPY
     Dosage: UNK, OW
     Route: 062
     Dates: end: 2012

REACTIONS (4)
  - Hyperkeratosis [None]
  - Deafness [None]
  - Neuropathy peripheral [None]
  - Gout [None]
